FAERS Safety Report 7363160-9 (Version None)
Quarter: 2011Q1

REPORT INFORMATION
  Report Type: 
  Country: None (occurrence: None)
  Receive Date: 20110321
  Receipt Date: 20091119
  Transmission Date: 20110831
  Serious: Yes (Hospitalization, Other)
  Sender: FDA-Public Use
  Company Number: US-BAYER-200939956NA

PATIENT
  Sex: Male
  Weight: 84.354 kg

DRUGS (8)
  1. METOPROLOL [Concomitant]
     Dosage: 50 MG, TID
     Route: 048
     Dates: start: 20060115
  2. IMDUR [Concomitant]
     Dosage: 30 MG, QD
     Route: 048
     Dates: start: 20060113
  3. FUROSEMIDE [Concomitant]
     Indication: FLUID RETENTION
     Dosage: 20 MG, BID
     Route: 048
  4. COREG [Concomitant]
     Indication: HYPERTENSION
     Dosage: 6.25 MG, BID
     Route: 048
     Dates: start: 20060115
  5. VASOTEC [Concomitant]
     Dosage: 2.5 MG, QD
     Route: 048
     Dates: start: 20051119
  6. TRASYLOL [Suspect]
     Indication: CORONARY ARTERY BYPASS
     Dosage: 50 UNK, UNK
     Route: 042
     Dates: start: 20060125, end: 20060125
  7. PRAVASTATIN [Concomitant]
     Dosage: 40 MG, UNK
     Route: 048
     Dates: start: 20060115
  8. ASPIRIN [Concomitant]
     Indication: PAIN
     Dosage: 325 MG, QD
     Route: 048
     Dates: start: 20060115

REACTIONS (8)
  - RENAL FAILURE [None]
  - PAIN [None]
  - INJURY [None]
  - ANXIETY [None]
  - UNEVALUABLE EVENT [None]
  - FEAR [None]
  - DEPRESSION [None]
  - ANHEDONIA [None]
